FAERS Safety Report 17214155 (Version 2)
Quarter: 2020Q1

REPORT INFORMATION
  Report Type: Spontaneous
  Country: US (occurrence: US)
  Receive Date: 20191230
  Receipt Date: 20200121
  Transmission Date: 20200409
  Serious: No
  Sender: FDA-Public Use
  Company Number: US-PFIZER INC-2019555286

PATIENT

DRUGS (1)
  1. ADVIL PM [Suspect]
     Active Substance: DIPHENHYDRAMINE CITRATE\IBUPROFEN
     Dosage: UNK
     Dates: start: 20191221

REACTIONS (3)
  - Throat irritation [Unknown]
  - Foreign body in respiratory tract [Unknown]
  - Oropharyngeal pain [Unknown]
